FAERS Safety Report 4307003-6 (Version None)
Quarter: 2004Q1

REPORT INFORMATION
  Report Type: 
  Country: None (occurrence: None)
  Receive Date: 20040227
  Receipt Date: 20040227
  Transmission Date: 20041129
  Serious: Yes (Other)
  Sender: FDA-Public Use
  Company Number: None

PATIENT
  Age: 29 Year

DRUGS (1)
  1. MICROGESTIN FE 1.5/30 [Suspect]
     Indication: DYSMENORRHOEA
     Dosage: 1 PO QD
     Route: 048

REACTIONS (2)
  - PHARMACEUTICAL PRODUCT COMPLAINT [None]
  - PREMENSTRUAL SYNDROME [None]
